FAERS Safety Report 18339551 (Version 1)
Quarter: 2020Q4

REPORT INFORMATION
  Report Type: Report from Study
  Country: BR (occurrence: BR)
  Receive Date: 20201002
  Receipt Date: 20201002
  Transmission Date: 20210113
  Serious: Yes (Other)
  Sender: FDA-Public Use
  Company Number: BR-BRISTOL-MYERS SQUIBB COMPANY-BMS-2020-080294

PATIENT
  Sex: Female

DRUGS (3)
  1. ALENIA [BUDESONIDE;FORMOTEROL FUMARATE] [Concomitant]
     Active Substance: BUDESONIDE\FORMOTEROL FUMARATE
     Indication: BRONCHITIS
  2. ABATACEPT [Suspect]
     Active Substance: ABATACEPT
     Dosage: 250 MILLIGRAM, QMO; 3 VIALS
     Route: 042
     Dates: start: 20200723
  3. ABATACEPT [Suspect]
     Active Substance: ABATACEPT
     Indication: RHEUMATOID ARTHRITIS
     Dosage: 250 MILLIGRAM, QMO; 3 VIALS
     Route: 042
     Dates: start: 20121128

REACTIONS (1)
  - Eye disorder [Recovering/Resolving]
